FAERS Safety Report 18884772 (Version 2)
Quarter: 2021Q1

REPORT INFORMATION
  Report Type: Spontaneous
  Country: US (occurrence: US)
  Receive Date: 20210212
  Receipt Date: 20210219
  Transmission Date: 20210420
  Serious: Yes (Hospitalization, Disabling, Other)
  Sender: FDA-Public Use
  Company Number: US-PFIZER INC-2021128773

PATIENT
  Age: 47 Year
  Sex: Female

DRUGS (2)
  1. HEPARIN SODIUM. [Suspect]
     Active Substance: HEPARIN SODIUM
     Dosage: UNK
  2. OXYGEN. [Concomitant]
     Active Substance: OXYGEN
     Dosage: UNK

REACTIONS (3)
  - Compartment syndrome [Recovered/Resolved]
  - Heparin-induced thrombocytopenia [Recovered/Resolved]
  - Peripheral ischaemia [Recovered/Resolved]
